FAERS Safety Report 4274662-6 (Version None)
Quarter: 2004Q1

REPORT INFORMATION
  Report Type: 
  Country: None (occurrence: None)
  Receive Date: 20040120
  Receipt Date: 20040120
  Transmission Date: 20041129
  Serious: No
  Sender: FDA-Public Use
  Company Number: None

PATIENT
  Age: 60 Year
  Sex: Male
  Weight: 28.5766 kg

DRUGS (5)
  1. CEFAZOLIN [Suspect]
     Indication: PROPHYLAXIS
     Dosage: 1 GRAM ONCE INTRAVENOUS
     Route: 042
     Dates: start: 20031125, end: 20031125
  2. ZEMURON [Concomitant]
  3. VERSED [Concomitant]
  4. FENTANYL [Concomitant]
  5. PROPOFOL [Concomitant]

REACTIONS (1)
  - BLOOD PRESSURE DECREASED [None]
